FAERS Safety Report 7461042-5 (Version None)
Quarter: 2011Q2

REPORT INFORMATION
  Report Type: 
  Country: None (occurrence: None)
  Receive Date: 20110505
  Receipt Date: 20110502
  Transmission Date: 20111010
  Serious: Yes (Other)
  Sender: FDA-Public Use
  Company Number: DE-GENZYME-FABR-1001864

PATIENT

DRUGS (1)
  1. FABRAZYME [Suspect]
     Indication: FABRY'S DISEASE
     Dosage: 1 MG/KG, Q2W
     Route: 042

REACTIONS (3)
  - GENERAL PHYSICAL HEALTH DETERIORATION [None]
  - OSTEOMYELITIS [None]
  - OEDEMA PERIPHERAL [None]
